FAERS Safety Report 11674728 (Version 1)
Quarter: 2015Q4

REPORT INFORMATION
  Report Type: Spontaneous
  Country: GB (occurrence: GB)
  Receive Date: 20151028
  Receipt Date: 20151028
  Transmission Date: 20160304
  Serious: Yes (Other)
  Sender: FDA-Public Use
  Company Number: GB-GALDERMA-GB15007924

PATIENT
  Age: 46 Year
  Sex: Female
  Weight: 90 kg

DRUGS (6)
  1. PREDNISOLONE. [Concomitant]
     Active Substance: PREDNISOLONE
     Dates: start: 20151012, end: 20151013
  2. DOXYCYCLINE. [Suspect]
     Active Substance: DOXYCYCLINE
     Dates: start: 20151012, end: 20151013
  3. AMOXICILLIN. [Concomitant]
     Active Substance: AMOXICILLIN
     Dates: start: 20151013
  4. CALCIPOTRIOL [Concomitant]
     Active Substance: CALCIPOTRIENE
     Dates: start: 20150825, end: 20150922
  5. SALBUTAMOL [Concomitant]
     Active Substance: ALBUTEROL
     Dosage: AS NECESSARY
     Dates: start: 20151007
  6. CLENIL MODULITE [Concomitant]
     Active Substance: BECLOMETHASONE DIPROPIONATE
     Dates: start: 20151007

REACTIONS (5)
  - Malaise [Recovering/Resolving]
  - Anxiety [Unknown]
  - Chills [Unknown]
  - Back pain [Recovering/Resolving]
  - Nervousness [Recovering/Resolving]

NARRATIVE: CASE EVENT DATE: 20151012
